FAERS Safety Report 7240593-2 (Version None)
Quarter: 2011Q1

REPORT INFORMATION
  Report Type: 
  Country: None (occurrence: None)
  Receive Date: 20110120
  Receipt Date: 20110120
  Transmission Date: 20110831
  Serious: Yes (Hospitalization, Disabling, Other)
  Sender: FDA-Public Use
  Company Number: None

PATIENT
  Age: 31 Year
  Sex: Male
  Weight: 86.1834 kg

DRUGS (4)
  1. ZYPREXA [Suspect]
     Dosage: 2 20MG DAILY
     Dates: start: 20080101, end: 20090101
  2. DEPAKOTE ER [Suspect]
     Indication: DELUSION
     Dosage: 2 500MG'S IN AM 3 500MG'S PM X 2 ORAL
     Route: 048
     Dates: start: 20080101, end: 20090101
  3. DEPAKOTE ER [Suspect]
     Indication: PARANOIA
     Dosage: 2 500MG'S IN AM 3 500MG'S PM X 2 ORAL
     Route: 048
     Dates: start: 20080101, end: 20090101
  4. ZOLOFT [Suspect]
     Dosage: 1-50MG. DAILY (CRUSHED)
     Dates: start: 20080101, end: 20090101

REACTIONS (10)
  - PARAPHILIA [None]
  - EXHIBITIONISM [None]
  - IMPRISONMENT [None]
  - AMNESIA [None]
  - SEXUAL ABUSE [None]
  - ABNORMAL BEHAVIOUR [None]
  - VITAMIN D DEFICIENCY [None]
  - ANAEMIA [None]
  - PERSONALITY CHANGE [None]
  - WHITE BLOOD CELL COUNT DECREASED [None]
